FAERS Safety Report 11854323 (Version 1)
Quarter: 2015Q4

REPORT INFORMATION
  Report Type: Spontaneous
  Country: DK (occurrence: DK)
  Receive Date: 20151221
  Receipt Date: 20151221
  Transmission Date: 20160305
  Serious: Yes (Hospitalization, Other)
  Sender: FDA-Public Use
  Company Number: DK-AMGEN-DNKSP2015132493

PATIENT
  Age: 47 Year
  Sex: Male

DRUGS (1)
  1. NEUPOGEN [Suspect]
     Active Substance: FILGRASTIM
     Indication: HAEMATOPOIETIC STEM CELL MOBILISATION
     Dosage: 10 MUG/KG, QD
     Route: 058

REACTIONS (4)
  - Pyrexia [Unknown]
  - C-reactive protein [Unknown]
  - Back pain [Unknown]
  - White blood cell count increased [Unknown]
